FAERS Safety Report 8073103-0 (Version None)
Quarter: 2012Q1

REPORT INFORMATION
  Report Type: 
  Country: None (occurrence: None)
  Receive Date: 20120120
  Receipt Date: 20120105
  Transmission Date: 20120608
  Serious: No
  Sender: FDA-Public Use
  Company Number: B0772567A

PATIENT
  Sex: Male

DRUGS (9)
  1. SUGUAN TABLET (SUGUAN) [Suspect]
     Indication: TYPE 2 DIABETES MELLITUS
     Dosage: UNK/ORAL
     Route: 048
     Dates: start: 20090101, end: 20110925
  2. FUROSEMIDE [Concomitant]
  3. DIGOXIN [Suspect]
     Indication: CARDIAC FAILURE
     Dosage: .25 MG/UNK/ORAL
     Route: 048
     Dates: start: 20110825, end: 20110925
  4. ENALAPRIL MALEATE [Concomitant]
  5. METOPROLOL [Concomitant]
  6. NITROGLYCERIN [Concomitant]
  7. ALLOPURINOL [Concomitant]
  8. SPIRONOLACTONE [Concomitant]
  9. WARFARIN SODIUM [Concomitant]

REACTIONS (2)
  - HYPOGLYCAEMIA [None]
  - TOXICITY TO VARIOUS AGENTS [None]
